FAERS Safety Report 9286091 (Version 1)
Quarter: 2013Q2

REPORT INFORMATION
  Report Type: Spontaneous
  Country: US (occurrence: US)
  Receive Date: 20130510
  Receipt Date: 20130510
  Transmission Date: 20140414
  Serious: Yes (Other)
  Sender: FDA-Public Use
  Company Number: US-RB-053315-13

PATIENT
  Age: 30 Year
  Sex: Female

DRUGS (6)
  1. SUBOXONE TABLET [Suspect]
     Indication: DRUG DEPENDENCE
     Route: 060
     Dates: start: 2009
  2. GENERIC BUPRENORPHINE [Suspect]
     Indication: DRUG DEPENDENCE
     Route: 060
  3. GENERIC BUPRENORPHINE [Suspect]
     Dosage: VARIOUS TAPERED DOSES DOWN TO 4-6 MG DAILY
     Route: 060
     Dates: end: 201205
  4. GENERIC BUPRENORPHINE [Suspect]
     Dosage: 4-6 MG DAILY
     Route: 060
     Dates: start: 201205, end: 201206
  5. SUBOXONE FILM [Suspect]
     Indication: DRUG DEPENDENCE
     Dosage: SUBOXONE FILM; UNKNOWN DAILY DOSAGE
     Route: 060
     Dates: start: 201206, end: 201212
  6. LAMICTAL [Concomitant]
     Indication: POST-TRAUMATIC EPILEPSY
     Dosage: UNKNOWN DOSAGE DETAILS; DAILY
     Route: 048
     Dates: start: 2010

REACTIONS (8)
  - Fibromyalgia [Not Recovered/Not Resolved]
  - Underdose [Recovered/Resolved]
  - Wrong technique in drug usage process [Recovered/Resolved]
  - Back pain [Not Recovered/Not Resolved]
  - Neck pain [Not Recovered/Not Resolved]
  - Condition aggravated [Not Recovered/Not Resolved]
  - Intervertebral disc protrusion [Not Recovered/Not Resolved]
  - Cervical spinal stenosis [Not Recovered/Not Resolved]
